FAERS Safety Report 8892080 (Version 1)
Quarter: 2012Q4

REPORT INFORMATION
  Report Type: Spontaneous
  Country: US (occurrence: None)
  Receive Date: 20121031
  Receipt Date: 20121031
  Transmission Date: 20130627
  Serious: Yes (Hospitalization)
  Sender: FDA-Public Use
  Company Number: 2012MA012435

PATIENT
  Age: 45 Day
  Sex: Female

DRUGS (1)
  1. OXYCODONE HCL [Suspect]
     Indication: PROCEDURAL PAIN
     Dosage: 10 MG; Q6H; TRMA

REACTIONS (8)
  - Motor dysfunction [None]
  - Sedation [None]
  - Respiratory distress [None]
  - Overdose [None]
  - Drug screen positive [None]
  - Oxygen saturation decreased [None]
  - Toxicity to various agents [None]
  - Apnoea [None]
